FAERS Safety Report 20449477 (Version 2)
Quarter: 2022Q2

REPORT INFORMATION
  Report Type: Spontaneous
  Country: US (occurrence: US)
  Receive Date: 20220209
  Receipt Date: 20220418
  Transmission Date: 20220721
  Serious: Yes (Other)
  Sender: FDA-Public Use
  Company Number: US-REGENERON PHARMACEUTICALS, INC.-2022-22359

PATIENT
  Sex: Male

DRUGS (2)
  1. EYLEA [Suspect]
     Active Substance: AFLIBERCEPT
     Indication: Neovascular age-related macular degeneration
     Dosage: 2 MG, EVERY 2 MONTHS
     Route: 031
     Dates: start: 20200427
  2. EYLEA [Suspect]
     Active Substance: AFLIBERCEPT
     Indication: Choroidal neovascularisation
     Dosage: 2 MG, EVERY 2 MONTHS (RESTART DOSE)
     Route: 031
     Dates: start: 20220203

REACTIONS (4)
  - Conjunctival abrasion [Recovered/Resolved]
  - Conjunctival laceration [Recovered/Resolved]
  - Conjunctival haemorrhage [Recovered/Resolved]
  - Product dose omission issue [Recovered/Resolved]

NARRATIVE: CASE EVENT DATE: 20220202
